FAERS Safety Report 21301132 (Version 1)
Quarter: 2022Q3

REPORT INFORMATION
  Report Type: Spontaneous
  Country: US (occurrence: US)
  Receive Date: 20220907
  Receipt Date: 20220907
  Transmission Date: 20221027
  Serious: No
  Sender: FDA-Public Use
  Company Number: US-PFIZER INC-202201087131

PATIENT
  Age: 12 Year
  Sex: Female
  Weight: 43.537 kg

DRUGS (1)
  1. GENOTROPIN [Suspect]
     Active Substance: SOMATROPIN
     Indication: Blood growth hormone abnormal
     Dosage: 2.2 INJECTION ONCE A DAY 6 DAYS A WEEK
     Dates: start: 202010

REACTIONS (4)
  - Drug dose omission by device [Not Recovered/Not Resolved]
  - Incorrect dose administered by device [Unknown]
  - Device mechanical issue [Unknown]
  - Poor quality device used [Unknown]

NARRATIVE: CASE EVENT DATE: 20220801
